FAERS Safety Report 7468453-2 (Version None)
Quarter: 2011Q2

REPORT INFORMATION
  Report Type: 
  Country: None (occurrence: None)
  Receive Date: 20110509
  Receipt Date: 20110502
  Transmission Date: 20111010
  Serious: Yes (Other)
  Sender: FDA-Public Use
  Company Number: US-AMGEN-USASP2011022870

PATIENT
  Age: 67 Year
  Sex: Female

DRUGS (5)
  1. XGEVA [Suspect]
     Indication: METASTASES TO BONE
     Dates: start: 20110310, end: 20110301
  2. ZOMETA [Concomitant]
     Dosage: UNK
     Dates: start: 20090101
  3. CALCIUM [Concomitant]
  4. FEMARA [Concomitant]
  5. VITAMIN A [Concomitant]

REACTIONS (11)
  - HYPOAESTHESIA [None]
  - DYSPNOEA EXERTIONAL [None]
  - JAW FRACTURE [None]
  - PALPITATIONS [None]
  - FATIGUE [None]
  - PARAESTHESIA [None]
  - MUSCLE SPASMS [None]
  - ASTHENIA [None]
  - DYSPNOEA [None]
  - INFLUENZA LIKE ILLNESS [None]
  - BONE PAIN [None]
